FAERS Safety Report 5933588-X (Version None)
Quarter: 2008Q4

REPORT INFORMATION
  Report Type: 
  Country: None (occurrence: None)
  Receive Date: 20081029
  Receipt Date: 20081027
  Transmission Date: 20090506
  Serious: Yes (Life-Threatening, Hospitalization, Disabling)
  Sender: FDA-Public Use
  Company Number: GB-JNJFOC-20081006021

PATIENT
  Age: 55 Year
  Sex: Female

DRUGS (4)
  1. ITRACONAZOLE [Suspect]
     Indication: PHARYNGITIS
     Route: 048
  2. GLICLAZIDE [Concomitant]
     Route: 048
  3. METFORMIN HYDROCHLORIDE [Concomitant]
     Route: 048
  4. MIRTAZAPINE [Concomitant]
     Indication: DEPRESSION
     Route: 065

REACTIONS (1)
  - SWELLING FACE [None]
